FAERS Safety Report 12072774 (Version 1)
Quarter: 2016Q1

REPORT INFORMATION
  Report Type: Spontaneous
  Country: RU (occurrence: RU)
  Receive Date: 20160212
  Receipt Date: 20160212
  Transmission Date: 20160526
  Serious: Yes (Death)
  Sender: FDA-Public Use
  Company Number: RU-PFIZER INC-2016071754

PATIENT
  Age: 63 Year
  Sex: Male

DRUGS (1)
  1. SUTENT [Suspect]
     Active Substance: SUNITINIB MALATE
     Indication: METASTATIC RENAL CELL CARCINOMA
     Dosage: 50 MG, CYCLIC (4 WEEKS INTAKE AND 2 WEEKS OFF)
     Route: 048
     Dates: start: 2013

REACTIONS (2)
  - Asphyxia [Fatal]
  - Vomiting [Unknown]

NARRATIVE: CASE EVENT DATE: 20160111
